FAERS Safety Report 9123223 (Version 3)
Quarter: 2013Q2

REPORT INFORMATION
  Report Type: Spontaneous
  Country: DE (occurrence: None)
  Receive Date: 20130129
  Receipt Date: 20130606
  Transmission Date: 20140414
  Serious: Yes (Hospitalization, Other)
  Sender: FDA-Public Use
  Company Number: 2013DE001036

PATIENT
  Age: 57 Year
  Sex: Female
  Weight: 93 kg

DRUGS (11)
  1. PONATINIB [Suspect]
     Indication: CHRONIC MYELOID LEUKAEMIA
     Route: 048
     Dates: start: 20121129, end: 20121205
  2. PONATINIB [Suspect]
     Route: 048
     Dates: start: 20121129, end: 20121205
  3. FLUPIRTINE (FLUPIRTINE) [Concomitant]
  4. IBUPROFEN (IBUPROFEN) [Concomitant]
  5. PANTOPRAZOLE (PANTOPRAZOLE) [Concomitant]
  6. TRAMADOL (TRAMADOL) [Concomitant]
  7. BASODEXAN (UREA) [Concomitant]
  8. BASODEXAN (UREA) [Concomitant]
  9. EBENOL (HYDROCORTISONE ACETATE) [Concomitant]
  10. LAUROMACROGOL 400 (LAUROMACROGOL 400) [Concomitant]
  11. ENALAPRIL [Concomitant]

REACTIONS (4)
  - Polyneuropathy [None]
  - Myalgia [None]
  - Gait disturbance [None]
  - Peripheral arterial occlusive disease [None]
